FAERS Safety Report 8390876-8 (Version None)
Quarter: 2012Q2

REPORT INFORMATION
  Report Type: 
  Country: None (occurrence: None)
  Receive Date: 20120529
  Receipt Date: 20120522
  Transmission Date: 20120825
  Serious: Yes (Hospitalization)
  Sender: FDA-Public Use
  Company Number: US-BAYER-2012-017516

PATIENT
  Age: 17 Year
  Sex: Female

DRUGS (6)
  1. NASONEX [Concomitant]
     Dosage: 50 MCG, UNK
  2. STOOL SOFTENER [Concomitant]
     Indication: CONSTIPATION
  3. CIPROFLOXACIN [Concomitant]
     Dosage: 500 MG, UNK
  4. YAZ [Suspect]
     Indication: PREMENSTRUAL SYNDROME
     Dosage: UNK
     Route: 048
     Dates: start: 20071101, end: 20100101
  5. ZYRTEC [Concomitant]
     Dosage: 10 MG, UNK
  6. LORATADINE [Concomitant]
     Dosage: 24D

REACTIONS (3)
  - PAIN [None]
  - CHOLELITHIASIS [None]
  - CHOLECYSTITIS CHRONIC [None]
